FAERS Safety Report 6139960-X (Version None)
Quarter: 2009Q1

REPORT INFORMATION
  Report Type: 
  Country: None (occurrence: None)
  Receive Date: 20090324
  Receipt Date: 20090317
  Transmission Date: 20090719
  Serious: Yes (Other)
  Sender: FDA-Public Use
  Company Number: GXKR2009AT03426

PATIENT
  Age: 46 Year
  Sex: Male

DRUGS (1)
  1. METFORMIN HYDROCHLORIDE [Suspect]
     Dosage: 850 MG, QD, IN THE EVENING,

REACTIONS (2)
  - FATIGUE [None]
  - HANGOVER [None]
